FAERS Safety Report 4358371-0 (Version None)
Quarter: 2004Q2

REPORT INFORMATION
  Report Type: 
  Country: None (occurrence: None)
  Receive Date: 20040512
  Receipt Date: 20040512
  Transmission Date: 20050107
  Serious: Yes (Disabling)
  Sender: FDA-Public Use
  Company Number: None

PATIENT
  Sex: Female
  Weight: 68.0396 kg

DRUGS (1)
  1. FLUOXETINE [Suspect]
     Dosage: 20 MG 3 TABS QD
     Dates: start: 20040409

REACTIONS (6)
  - ASTHENIA [None]
  - CRYING [None]
  - DISEASE RECURRENCE [None]
  - EMOTIONAL DISORDER [None]
  - INSOMNIA [None]
  - PHARMACEUTICAL PRODUCT COMPLAINT [None]
